FAERS Safety Report 8186467-4 (Version None)
Quarter: 2012Q1

REPORT INFORMATION
  Report Type: 
  Country: None (occurrence: None)
  Receive Date: 20120305
  Receipt Date: 20120305
  Transmission Date: 20120608
  Serious: Yes (Hospitalization)
  Sender: FDA-Public Use
  Company Number: None

PATIENT
  Age: 90 Year
  Sex: Female
  Weight: 72.5755 kg

DRUGS (2)
  1. BUMEX [Concomitant]
  2. SOOTHANOL X2 [Suspect]
     Dosage: TOPICAL APPLICATION X 1
     Route: 061
     Dates: start: 20120108, end: 20120108

REACTIONS (4)
  - GAIT DISTURBANCE [None]
  - CELLULITIS [None]
  - APPLICATION SITE PAIN [None]
  - ERYTHEMA [None]
